FAERS Safety Report 5852961-1 (Version None)
Quarter: 2008Q3

REPORT INFORMATION
  Report Type: 
  Country: None (occurrence: None)
  Receive Date: 20080821
  Receipt Date: 20080808
  Transmission Date: 20090109
  Serious: Yes (Hospitalization)
  Sender: FDA-Public Use
  Company Number: JP-ABBOTT-08P-087-0471748-00

PATIENT
  Age: 69 Year
  Sex: Male

DRUGS (8)
  1. LEUPLIN SR FOR INJECTION KIT [Suspect]
     Indication: PROSTATE CANCER STAGE II
     Route: 058
     Dates: start: 20060705
  2. 25MC.ALINAMIN-F SUGAR-COATED TABLETS (PURSULTIAMINE) [Concomitant]
     Indication: NEUROPATHY PERIPHERAL
     Route: 048
  3. 25MC.ALINAMIN-F SUGAR-COATED TABLETS (PURSULTIAMINE) [Concomitant]
     Route: 048
  4. BICALUTAMIDE [Concomitant]
     Indication: PROSTATE CANCER STAGE II
     Route: 048
  5. MECOBALAMIN [Concomitant]
     Indication: NEUROPATHY PERIPHERAL
     Route: 048
  6. MECOBALAMIN [Concomitant]
     Route: 048
  7. CASTER D (FAMOTIDINE) [Concomitant]
     Indication: GASTRIC ULCER
     Route: 048
  8. ATENOLOL [Concomitant]
     Indication: HYPERTENSION
     Route: 048

REACTIONS (4)
  - BILE DUCT STONE [None]
  - BLOOD ALKALINE PHOSPHATASE INCREASED [None]
  - BLOOD CHOLESTEROL INCREASED [None]
  - PANCREATITIS ACUTE [None]
